FAERS Safety Report 7199353-3 (Version None)
Quarter: 2010Q4

REPORT INFORMATION
  Report Type: 
  Country: None (occurrence: None)
  Receive Date: 20101228
  Receipt Date: 20101220
  Transmission Date: 20110411
  Serious: Yes (Death, Other)
  Sender: FDA-Public Use
  Company Number: JP-SANOFI-AVENTIS-2010SA076605

PATIENT
  Age: 61 Year
  Sex: Male

DRUGS (8)
  1. ELPLAT [Suspect]
     Route: 041
  2. ELPLAT [Suspect]
     Route: 041
     Dates: start: 20101208, end: 20101208
  3. FLUOROURACIL [Suspect]
     Route: 040
     Dates: start: 20101208, end: 20101208
  4. FLUOROURACIL [Suspect]
     Route: 041
     Dates: start: 20101208, end: 20101210
  5. FLUOROURACIL [Suspect]
     Route: 041
  6. AVASTIN [Suspect]
     Route: 041
     Dates: start: 20101208, end: 20101208
  7. CALCIUM LEVOFOLINATE [Concomitant]
     Route: 041
     Dates: start: 20101208, end: 20101208
  8. CALCIUM LEVOFOLINATE [Concomitant]
     Route: 041

REACTIONS (7)
  - DEATH [None]
  - DECREASED APPETITE [None]
  - LOSS OF CONSCIOUSNESS [None]
  - MALAISE [None]
  - NAUSEA [None]
  - RESPIRATORY DISORDER [None]
  - VOMITING [None]
